FAERS Safety Report 4975355-X (Version None)
Quarter: 2006Q2

REPORT INFORMATION
  Report Type: 
  Country: None (occurrence: None)
  Receive Date: 20060418
  Receipt Date: 20060405
  Transmission Date: 20061013
  Serious: Yes (Hospitalization)
  Sender: FDA-Public Use
  Company Number: US-MERCK-0604USA01062

PATIENT
  Age: 69 Year
  Sex: Male
  Weight: 86 kg

DRUGS (8)
  1. VIOXX [Suspect]
     Indication: ARTHRITIS
     Route: 048
     Dates: start: 20030601, end: 20040318
  2. VIOXX [Suspect]
     Route: 048
     Dates: start: 20030601, end: 20040318
  3. VIOXX [Suspect]
     Route: 048
     Dates: start: 20030601, end: 20040318
  4. VIOXX [Suspect]
     Indication: BACK PAIN
     Route: 048
     Dates: start: 20030601, end: 20040318
  5. VIOXX [Suspect]
     Route: 048
     Dates: start: 20030601, end: 20040318
  6. VIOXX [Suspect]
     Route: 048
     Dates: start: 20030601, end: 20040318
  7. METHADONE HYDROCHLORIDE [Concomitant]
     Indication: PAIN
     Route: 065
  8. PROZAC [Concomitant]
     Route: 065

REACTIONS (5)
  - AORTIC VALVE INCOMPETENCE [None]
  - CEREBROVASCULAR ACCIDENT [None]
  - PARAESTHESIA [None]
  - SPINAL LAMINECTOMY [None]
  - TRICUSPID VALVE INCOMPETENCE [None]
